FAERS Safety Report 20705487 (Version 5)
Quarter: 2024Q4

REPORT INFORMATION
  Report Type: Spontaneous
  Country: IN (occurrence: IN)
  Receive Date: 20220413
  Receipt Date: 20241029
  Transmission Date: 20250114
  Serious: Yes (Other)
  Sender: PFIZER
  Company Number: IN-PFIZER INC-202200560438

PATIENT
  Age: 73 Year
  Sex: Female

DRUGS (3)
  1. PALBOCICLIB [Suspect]
     Active Substance: PALBOCICLIB
     Dosage: 1X/DAY, 21DAYS IN A MONTH
     Route: 048
     Dates: start: 20220117
  2. PALBOCICLIB [Suspect]
     Active Substance: PALBOCICLIB
     Dosage: UNK
     Route: 065
     Dates: start: 20220225
  3. PALBOCICLIB [Suspect]
     Active Substance: PALBOCICLIB
     Dosage: ONCE DAILY FOR FOR 21/30 DAYS
     Route: 048

REACTIONS (7)
  - Haemoglobin decreased [Unknown]
  - White blood cell count decreased [Unknown]
  - Blood creatinine increased [Unknown]
  - Neoplasm progression [Unknown]
  - Toothache [Unknown]
  - Proctalgia [Unknown]
  - Lymphoedema [Unknown]
